FAERS Safety Report 6338614-4 (Version None)
Quarter: 2009Q3

REPORT INFORMATION
  Report Type: 
  Country: None (occurrence: None)
  Receive Date: 20090903
  Receipt Date: 20090826
  Transmission Date: 20100115
  Serious: Yes (Death)
  Sender: FDA-Public Use
  Company Number: US-RANBAXY-2009US-26938

PATIENT

DRUGS (3)
  1. ACETAMINOPHEN [Suspect]
     Indication: DRUG USE FOR UNKNOWN INDICATION
     Dosage: UNK, UNK
     Route: 048
  2. FENTANYL [Suspect]
     Indication: DRUG USE FOR UNKNOWN INDICATION
     Dosage: APPLIED 5 PATCHES AT ONCE
     Route: 062
  3. AMPHETAMINE SULFATE [Suspect]
     Indication: DRUG USE FOR UNKNOWN INDICATION
     Dosage: UNK, UNK
     Route: 048

REACTIONS (5)
  - COMA [None]
  - COMPLETED SUICIDE [None]
  - HYPOTENSION [None]
  - OVERDOSE [None]
  - RESPIRATORY DEPRESSION [None]
